FAERS Safety Report 17703723 (Version 1)
Quarter: 2020Q2

REPORT INFORMATION
  Report Type: Spontaneous
  Country: US (occurrence: US)
  Receive Date: 20200424
  Receipt Date: 20200424
  Transmission Date: 20200714
  Serious: Yes (Other)
  Sender: FDA-Public Use
  Company Number: US-GLAXOSMITHKLINE-US2020069440

PATIENT
  Sex: Female

DRUGS (1)
  1. VENTOLIN HFA [Suspect]
     Active Substance: ALBUTEROL SULFATE
     Indication: PRODUCT USED FOR UNKNOWN INDICATION
     Dosage: UNK
     Route: 065

REACTIONS (9)
  - Wrong technique in product usage process [Unknown]
  - Bedridden [Unknown]
  - Dementia [Not Recovered/Not Resolved]
  - Spinal stenosis [Not Recovered/Not Resolved]
  - Coronary arterial stent insertion [Unknown]
  - Carotid artery disease [Not Recovered/Not Resolved]
  - Brain stent insertion [Unknown]
  - Mobility decreased [Unknown]
  - Stent placement [Unknown]

NARRATIVE: CASE EVENT DATE: 2014
